FAERS Safety Report 7271577-6 (Version None)
Quarter: 2011Q1

REPORT INFORMATION
  Report Type: 
  Country: None (occurrence: None)
  Receive Date: 20110203
  Receipt Date: 20110124
  Transmission Date: 20110831
  Serious: Yes (Other)
  Sender: FDA-Public Use
  Company Number: GR-JNJFOC-20110106311

PATIENT
  Age: 56 Year
  Sex: Female

DRUGS (3)
  1. REMICADE [Suspect]
     Indication: PSORIATIC ARTHROPATHY
     Route: 042
  2. REMICADE [Suspect]
     Route: 042
  3. METHYLPREDNISOLONE [Concomitant]

REACTIONS (4)
  - OXYGEN SATURATION DECREASED [None]
  - INFUSION RELATED REACTION [None]
  - HYPERSENSITIVITY [None]
  - BLOOD PRESSURE INCREASED [None]
